FAERS Safety Report 15385565 (Version 1)
Quarter: 2018Q3

REPORT INFORMATION
  Report Type: Spontaneous
  Country: US (occurrence: US)
  Receive Date: 20180907
  Receipt Date: 20180907
  Transmission Date: 20181010
  Serious: Yes (Hospitalization)
  Sender: FDA-Public Use
  Company Number: None

PATIENT
  Sex: Female
  Weight: 94.8 kg

DRUGS (2)
  1. IBUPROFEN. [Concomitant]
     Active Substance: IBUPROFEN
  2. MIRENA [Suspect]
     Active Substance: LEVONORGESTREL
     Dates: start: 20170616, end: 20180828

REACTIONS (10)
  - Adnexa uteri pain [None]
  - Back pain [None]
  - Urine analysis abnormal [None]
  - Syncope [None]
  - Stress [None]
  - Abdominal pain [None]
  - Uterine inflammation [None]
  - Thrombosis [None]
  - Depression [None]
  - Hypotension [None]
